FAERS Safety Report 20874084 (Version 4)
Quarter: 2024Q4

REPORT INFORMATION
  Report Type: Spontaneous
  Country: US (occurrence: US)
  Receive Date: 20220525
  Receipt Date: 20241112
  Transmission Date: 20250115
  Serious: No
  Sender: PFIZER
  Company Number: US-PFIZER INC-202200689968

PATIENT
  Age: 66 Year
  Sex: Female
  Weight: 72.562 kg

DRUGS (1)
  1. PREMARIN [Suspect]
     Active Substance: ESTROGENS, CONJUGATED
     Indication: Hysterectomy
     Dosage: 1.25 MG, 1X/DAY
     Dates: start: 19970401

REACTIONS (5)
  - Extrasystoles [Unknown]
  - Chest pain [Unknown]
  - Malaise [Unknown]
  - Therapeutic response unexpected [Unknown]
  - Intentional product misuse [Unknown]
